FAERS Safety Report 5507614-6 (Version None)
Quarter: 2007Q4

REPORT INFORMATION
  Report Type: 
  Country: None (occurrence: None)
  Receive Date: 20071106
  Receipt Date: 20071031
  Transmission Date: 20080405
  Serious: Yes (Hospitalization, Other)
  Sender: FDA-Public Use
  Company Number: DE-ASTRAZENECA-2007PK02251

PATIENT
  Age: 20455 Day
  Sex: Female
  Weight: 58 kg

DRUGS (1)
  1. SEROQUEL [Suspect]
     Indication: DEPRESSIVE SYMPTOM
     Route: 048

REACTIONS (2)
  - DRUG TOXICITY [None]
  - SYNCOPE [None]
